FAERS Safety Report 21801664 (Version 1)
Quarter: 2022Q4

REPORT INFORMATION
  Report Type: Spontaneous
  Country: US (occurrence: US)
  Receive Date: 20221230
  Receipt Date: 20221230
  Transmission Date: 20230112
  Serious: No
  Sender: FDA-Public Use
  Company Number: US-Emergent Biosolutions-22000324

PATIENT
  Age: 25 Year
  Sex: Female

DRUGS (2)
  1. BAT [Suspect]
     Active Substance: EQUINE BOTULINUM NEUROTOXIN A/B/C/D/E/F/G IMMUNE FAB2
     Indication: Botulism
     Dosage: UNK
     Route: 042
  2. NALOXONE [Concomitant]
     Active Substance: NALOXONE
     Indication: Overdose
     Route: 030

REACTIONS (1)
  - Maternal exposure during pregnancy [Unknown]
